FAERS Safety Report 15668831 (Version 1)
Quarter: 2018Q4

REPORT INFORMATION
  Report Type: Spontaneous
  Country: GB (occurrence: GB)
  Receive Date: 20181129
  Receipt Date: 20181129
  Transmission Date: 20190205
  Serious: Yes (Hospitalization)
  Sender: FDA-Public Use
  Company Number: GB-SUN PHARMACEUTICAL INDUSTRIES LTD-2018RR-192260

PATIENT
  Age: 27 Year
  Sex: Female
  Weight: 60.32 kg

DRUGS (1)
  1. RANITIDINE. [Suspect]
     Active Substance: RANITIDINE
     Indication: PREMEDICATION
     Dosage: ()
     Route: 048
     Dates: start: 20171029, end: 20171029

REACTIONS (6)
  - Chest discomfort [Recovered/Resolved]
  - Lip swelling [Recovered/Resolved]
  - Hypersensitivity [Recovered/Resolved]
  - Pruritus [Recovered/Resolved]
  - Swollen tongue [Recovered/Resolved]
  - Maternal exposure during pregnancy [Unknown]

NARRATIVE: CASE EVENT DATE: 20171029
